FAERS Safety Report 4397054-8 (Version None)
Quarter: 2004Q3

REPORT INFORMATION
  Report Type: 
  Country: None (occurrence: None)
  Receive Date: 20040714
  Receipt Date: 20040708
  Transmission Date: 20050211
  Serious: Yes (Hospitalization)
  Sender: FDA-Public Use
  Company Number: PHEH2004US07421

PATIENT
  Age: 75 Year
  Sex: Female

DRUGS (1)
  1. AREDIA [Suspect]
     Dosage: UNK/UNK

REACTIONS (4)
  - HALITOSIS [None]
  - INFECTION [None]
  - OSTEONECROSIS [None]
  - TOOTH ABSCESS [None]
